FAERS Safety Report 7315902-6 (Version None)
Quarter: 2011Q1

REPORT INFORMATION
  Report Type: 
  Country: None (occurrence: None)
  Receive Date: 20110225
  Receipt Date: 20110218
  Transmission Date: 20110831
  Serious: Yes (Hospitalization)
  Sender: FDA-Public Use
  Company Number: US-AMGEN-USASP2011009883

PATIENT
  Age: 65 Year
  Sex: Female

DRUGS (1)
  1. ENBREL [Suspect]
     Indication: RHEUMATOID ARTHRITIS
     Dosage: 50 MG, Q2WK
     Dates: start: 20091101, end: 20091201

REACTIONS (5)
  - PAIN [None]
  - PROSTHESIS USER [None]
  - ABDOMINAL DISCOMFORT [None]
  - INFECTION [None]
  - KNEE OPERATION [None]
